FAERS Safety Report 22820212 (Version 3)
Quarter: 2024Q1

REPORT INFORMATION
  Report Type: Spontaneous
  Country: UA (occurrence: UA)
  Receive Date: 20230814
  Receipt Date: 20240106
  Transmission Date: 20240410
  Serious: Yes (Death, Hospitalization, Other)
  Sender: FDA-Public Use
  Company Number: UA-ABBVIE-5340599

PATIENT
  Age: 68 Year
  Sex: Female

DRUGS (1)
  1. VENETOCLAX [Suspect]
     Active Substance: VENETOCLAX
     Indication: Chronic lymphocytic leukaemia
     Dosage: DOSE TITRATION TO 300 MILLIGRAMS
     Route: 048
     Dates: start: 202211, end: 202307

REACTIONS (5)
  - Sepsis [Fatal]
  - Neutropenia [Recovering/Resolving]
  - Paronychia [Not Recovered/Not Resolved]
  - Pseudomonas infection [Recovering/Resolving]
  - Cellulitis [Not Recovered/Not Resolved]

NARRATIVE: CASE EVENT DATE: 20230701
